FAERS Safety Report 22518709 (Version 1)
Quarter: 2023Q2

REPORT INFORMATION
  Report Type: Spontaneous
  Country: MY (occurrence: MY)
  Receive Date: 20230605
  Receipt Date: 20230605
  Transmission Date: 20230721
  Serious: Yes (Hospitalization)
  Sender: FDA-Public Use
  Company Number: MY-AMGEN-MYSSP2023092957

PATIENT
  Age: 60 Year
  Sex: Male

DRUGS (3)
  1. PANITUMUMAB [Suspect]
     Active Substance: PANITUMUMAB
     Indication: Adenocarcinoma of colon
     Dosage: UNK
     Route: 065
     Dates: start: 20210315
  2. CAPECITABINE [Concomitant]
     Active Substance: CAPECITABINE
     Indication: Adenocarcinoma of colon
     Dosage: UNK
     Route: 065
     Dates: start: 20210315
  3. OXALIPLATIN [Concomitant]
     Active Substance: OXALIPLATIN
     Indication: Adenocarcinoma of colon
     Dosage: UNK
     Route: 065
     Dates: start: 20210315

REACTIONS (8)
  - Jaundice cholestatic [Unknown]
  - Papule [Recovering/Resolving]
  - Pulmonary mass [Unknown]
  - Diverticulum intestinal [Unknown]
  - Off label use [Unknown]
  - Pustule [Recovering/Resolving]
  - Dermatitis acneiform [Recovering/Resolving]
  - Skin toxicity [Recovering/Resolving]

NARRATIVE: CASE EVENT DATE: 20210301
